FAERS Safety Report 23931008 (Version 1)
Quarter: 2024Q2

REPORT INFORMATION
  Report Type: Spontaneous
  Country: CN (occurrence: None)
  Receive Date: 20240603
  Receipt Date: 20240603
  Transmission Date: 20240716
  Serious: Yes (Hospitalization)
  Sender: FDA-Public Use
  Company Number: CN-ROCHE-3574227

PATIENT
  Age: 52 Year
  Sex: Female
  Weight: 55.5 kg

DRUGS (6)
  1. AVASTIN [Suspect]
     Active Substance: BEVACIZUMAB
     Indication: Ovarian cancer
     Route: 041
     Dates: start: 20240310
  2. AVASTIN [Suspect]
     Active Substance: BEVACIZUMAB
     Route: 041
     Dates: start: 20240408
  3. NEDAPLATIN [Suspect]
     Active Substance: NEDAPLATIN
     Indication: Ovarian cancer
     Dosage: DAY1
     Route: 041
     Dates: start: 20240310
  4. NEDAPLATIN [Suspect]
     Active Substance: NEDAPLATIN
     Dosage: DAY1
     Route: 041
     Dates: start: 20240408
  5. PACLITAXEL [Concomitant]
     Active Substance: PACLITAXEL
     Indication: Ovarian cancer
     Dosage: DAY1
     Dates: start: 20240310
  6. PACLITAXEL [Concomitant]
     Active Substance: PACLITAXEL
     Dosage: DAY1
     Dates: start: 20240408

REACTIONS (1)
  - Myelosuppression [Unknown]

NARRATIVE: CASE EVENT DATE: 20240410
